FAERS Safety Report 18216216 (Version 1)
Quarter: 2020Q3

REPORT INFORMATION
  Report Type: Spontaneous
  Country: FR (occurrence: FR)
  Receive Date: 20200901
  Receipt Date: 20200901
  Transmission Date: 20201103
  Serious: Yes (Hospitalization)
  Sender: FDA-Public Use
  Company Number: FR-SUN PHARMACEUTICAL INDUSTRIES LTD-2020RR-259457

PATIENT
  Age: 15 Year
  Sex: Male

DRUGS (2)
  1. XANAX [Suspect]
     Active Substance: ALPRAZOLAM
     Indication: INTENTIONAL PRODUCT MISUSE
     Dosage: 8 DOSAGE FORM, UNK
     Route: 048
     Dates: start: 2018, end: 202003
  2. TRAMADOL. [Suspect]
     Active Substance: TRAMADOL
     Indication: INTENTIONAL PRODUCT MISUSE
     Dosage: 1 BOITE PRISE EN 8 JOURS ()
     Route: 048
     Dates: start: 202003, end: 202003

REACTIONS (1)
  - Poisoning deliberate [Recovered/Resolved]

NARRATIVE: CASE EVENT DATE: 202003
